FAERS Safety Report 6282585-6 (Version None)
Quarter: 2009Q3

REPORT INFORMATION
  Report Type: 
  Country: None (occurrence: None)
  Receive Date: 20090724
  Receipt Date: 20090722
  Transmission Date: 20100115
  Serious: Yes (Life-Threatening, Other)
  Sender: FDA-Public Use
  Company Number: DE-JNJFOC-20081001604

PATIENT
  Sex: Male
  Weight: 35 kg

DRUGS (5)
  1. TOPAMAX [Suspect]
     Indication: LENNOX-GASTAUT SYNDROME
     Route: 048
  2. TEGRETOL [Concomitant]
  3. KEPPRA [Concomitant]
  4. RUFINAMIDE [Concomitant]
     Route: 065
  5. ZONEGRAN [Concomitant]
     Route: 065

REACTIONS (1)
  - LOSS OF CONSCIOUSNESS [None]
